FAERS Safety Report 5973736-9 (Version None)
Quarter: 2008Q4

REPORT INFORMATION
  Report Type: 
  Country: None (occurrence: None)
  Receive Date: 20081201
  Receipt Date: 20081125
  Transmission Date: 20090506
  Serious: Yes (Other)
  Sender: FDA-Public Use
  Company Number: GB-B.I. PHARMACEUTICALS,INC./RIDGEFIELD-2008-UK-01796UK

PATIENT
  Age: 76 Year
  Sex: Male

DRUGS (9)
  1. SPIRIVA [Suspect]
  2. AMLODIPINE [Suspect]
     Dosage: 5MG
  3. OMEPRAZOLE [Suspect]
     Dosage: 20MG
  4. RAMIPRIL [Suspect]
     Dosage: 2.5MG
  5. SERETIDE [Suspect]
     Indication: ASTHMA
     Dosage: 1 DF
     Route: 055
     Dates: start: 20051208
  6. SIMVASTATIN [Suspect]
  7. TAMSULOSIN HCL [Suspect]
     Dosage: 500MG
  8. THEOPHYLLINE [Suspect]
     Dosage: 300MG
  9. VENTOLIN [Suspect]
     Indication: ASTHMA
     Route: 055

REACTIONS (4)
  - ASTHMA [None]
  - CEREBROVASCULAR ACCIDENT [None]
  - DYSPNOEA [None]
  - MEMORY IMPAIRMENT [None]
